FAERS Safety Report 17581368 (Version 1)
Quarter: 2020Q1

REPORT INFORMATION
  Report Type: Spontaneous
  Country: US (occurrence: US)
  Receive Date: 20200325
  Receipt Date: 20200325
  Transmission Date: 20200409
  Serious: Yes (Life-Threatening, Hospitalization, Disabling, Other)
  Sender: FDA-Public Use
  Company Number: None

PATIENT
  Age: 72 Year
  Sex: Male
  Weight: 85.3 kg

DRUGS (1)
  1. RIVAROXABAN [Suspect]
     Active Substance: RIVAROXABAN
     Indication: ATRIAL FIBRILLATION
     Route: 048
     Dates: start: 20190101, end: 20191227

REACTIONS (6)
  - Condition aggravated [None]
  - Loss of consciousness [None]
  - Headache [None]
  - Subdural haematoma [None]
  - Seizure [None]
  - Fall [None]

NARRATIVE: CASE EVENT DATE: 20191224
